FAERS Safety Report 25142287 (Version 1)
Quarter: 2025Q1

REPORT INFORMATION
  Report Type: Spontaneous
  Country: US (occurrence: US)
  Receive Date: 20250331
  Receipt Date: 20250331
  Transmission Date: 20250409
  Serious: No
  Sender: NOVARTIS
  Company Number: US-002147023-NVSC2025US052861

PATIENT
  Sex: Male

DRUGS (2)
  1. ASCIMINIB [Suspect]
     Active Substance: ASCIMINIB
     Indication: Philadelphia chromosome positive
     Route: 065
  2. ASCIMINIB [Suspect]
     Active Substance: ASCIMINIB
     Indication: Chronic myeloid leukaemia

REACTIONS (1)
  - Rash [Unknown]
